FAERS Safety Report 14794726 (Version 1)
Quarter: 2018Q2

REPORT INFORMATION
  Report Type: Report from Study
  Country: JP (occurrence: JP)
  Receive Date: 20180423
  Receipt Date: 20180423
  Transmission Date: 20180711
  Serious: Yes (Hospitalization)
  Sender: FDA-Public Use
  Company Number: JP-PFIZER INC-2018159482

PATIENT
  Age: 65 Year
  Sex: Male
  Weight: 69 kg

DRUGS (8)
  1. PRAVASTATIN /00880402/ [Concomitant]
     Active Substance: PRAVASTATIN SODIUM
     Dosage: NA
  2. TSUMURA DAIKENCHUTO EXTRACT GRANULES FOR ETHICAL USE [Concomitant]
     Active Substance: HERBALS
  3. NEXIUM [Concomitant]
     Active Substance: ESOMEPRAZOLE MAGNESIUM
  4. SUNITINIB MALATE. [Suspect]
     Active Substance: SUNITINIB MALATE
     Indication: RENAL CELL CARCINOMA
     Dosage: 50 MG, CYCLIC, 4 WEEKS ON/2 WEEKS OFF
     Route: 048
     Dates: start: 20180314, end: 20180323
  5. CEREDIST [Concomitant]
     Active Substance: TALTIRELIN
     Dosage: OD
  6. ZEFNART [Concomitant]
  7. FEBURIC [Concomitant]
     Active Substance: FEBUXOSTAT
  8. URIMOX [Concomitant]

REACTIONS (2)
  - Pyrexia [Recovered/Resolved]
  - Dehydration [Recovered/Resolved]

NARRATIVE: CASE EVENT DATE: 20180324
